FAERS Safety Report 22896287 (Version 4)
Quarter: 2023Q4

REPORT INFORMATION
  Report Type: Spontaneous
  Country: US (occurrence: US)
  Receive Date: 20230901
  Receipt Date: 20231120
  Transmission Date: 20240109
  Serious: Yes (Hospitalization)
  Sender: FDA-Public Use
  Company Number: US-PFIZER INC-PV202300147498

PATIENT
  Age: 68 Year
  Sex: Male
  Weight: 104.33 kg

DRUGS (6)
  1. BRAFTOVI [Suspect]
     Active Substance: ENCORAFENIB
     Indication: Lung neoplasm malignant
     Dosage: UNK (6 BRAFTOVI IN THE MORNING )
     Route: 048
     Dates: start: 20230814
  2. BRAFTOVI [Suspect]
     Active Substance: ENCORAFENIB
     Dosage: 4 CAPSULES, 1 TIME PER DAY TAKE WITH OR WITHOUT FOOD
     Route: 048
  3. MEKTOVI [Suspect]
     Active Substance: BINIMETINIB
     Indication: Lung neoplasm malignant
     Dosage: 30 MG, 2X/DAY (TAKE 2 TABLETS BY MOUTH 2 TIMES DAILY TAKE WITH OR WITHOUT FOOD FOR CANCER.)
     Route: 048
  4. MEKTOVI [Suspect]
     Active Substance: BINIMETINIB
     Dosage: UNK
     Dates: start: 20230814
  5. MEKTOVI [Suspect]
     Active Substance: BINIMETINIB
     Dosage: UNK (4 MEKTOVI IN MORNING AND 4 MEKTOVI IN THE EVENING)
  6. MEKTOVI [Suspect]
     Active Substance: BINIMETINIB
     Dosage: UNK (2 MEKTOVI IN THE MORNING AND 2 MEKTOVI AT NIGHT)

REACTIONS (8)
  - Colitis [Recovered/Resolved]
  - Feeling abnormal [Recovered/Resolved]
  - Nausea [Recovered/Resolved]
  - Feeding disorder [Recovered/Resolved]
  - Gastrointestinal pain [Recovered/Resolved]
  - Weight decreased [Recovered/Resolved]
  - Off label use [Unknown]
  - Diarrhoea [Unknown]

NARRATIVE: CASE EVENT DATE: 20230801
